FAERS Safety Report 20513260 (Version 1)
Quarter: 2022Q1

REPORT INFORMATION
  Report Type: Spontaneous
  Country: US (occurrence: US)
  Receive Date: 20220224
  Receipt Date: 20220224
  Transmission Date: 20220423
  Serious: No
  Sender: FDA-Public Use
  Company Number: US-AMNEAL PHARMACEUTICALS-2021-AMRX-01788

PATIENT
  Age: 76 Year
  Sex: Male
  Weight: 74.8 kg

DRUGS (10)
  1. RYTARY [Interacting]
     Active Substance: CARBIDOPA\LEVODOPA
     Indication: Parkinson^s disease
     Dosage: UNK MILLIGRAM
     Route: 065
  2. ATENOLOL [Interacting]
     Active Substance: ATENOLOL
     Indication: Hypertension
     Dosage: UNK
     Route: 065
     Dates: end: 2020
  3. AZILECT [Interacting]
     Active Substance: RASAGILINE MESYLATE
     Indication: Parkinson^s disease
     Dosage: UNK
     Route: 065
  4. GOCOVRI [Suspect]
     Active Substance: AMANTADINE
     Indication: Dyskinesia
     Dosage: 1 CAPSULES, 1X/DAY AT BED TIME
     Route: 048
     Dates: start: 20190822, end: 20190828
  5. GOCOVRI [Suspect]
     Active Substance: AMANTADINE
     Dosage: 274 MILLIGRAM, DAILY AT BED TIME
     Route: 048
     Dates: start: 20190829, end: 202012
  6. GOCOVRI [Suspect]
     Active Substance: AMANTADINE
     Dosage: 137 MILLIGRAM
     Route: 048
     Dates: start: 202012, end: 2021
  7. VITAMIN B1 [Concomitant]
     Active Substance: THIAMINE HYDROCHLORIDE
     Indication: Vitamin supplementation
     Dosage: UNK MILLIGRAM
     Route: 065
  8. PARCOPA [Concomitant]
     Active Substance: CARBIDOPA\LEVODOPA
     Indication: Product used for unknown indication
     Route: 065
  9. ROPINIROLE [Concomitant]
     Active Substance: ROPINIROLE
     Indication: Product used for unknown indication
     Dosage: 8 UNK
     Route: 065
     Dates: end: 2020
  10. INBRIJA [Concomitant]
     Active Substance: LEVODOPA
     Indication: Product used for unknown indication
     Route: 065

REACTIONS (9)
  - Hypotension [Recovered/Resolved]
  - Therapeutic response shortened [Unknown]
  - Muscular weakness [Recovering/Resolving]
  - Pollakiuria [Not Recovered/Not Resolved]
  - Dehydration [Recovering/Resolving]
  - Tremor [Recovering/Resolving]
  - Fall [Not Recovered/Not Resolved]
  - Hypertension [Recovered/Resolved]
  - Drug interaction [Unknown]

NARRATIVE: CASE EVENT DATE: 20200701
